FAERS Safety Report 7618727-7 (Version None)
Quarter: 2011Q3

REPORT INFORMATION
  Report Type: 
  Country: None (occurrence: None)
  Receive Date: 20110718
  Receipt Date: 20110711
  Transmission Date: 20111222
  Serious: Yes (Life-Threatening, Other)
  Sender: FDA-Public Use
  Company Number: JP-B.I. PHARMACEUTICALS,INC./RIDGEFIELD-2011-DE-03652GD

PATIENT
  Age: 67 Year
  Sex: Female

DRUGS (6)
  1. ANGIOTENSIN-CONVERTING ENZYME INHIBITOR [Concomitant]
     Indication: HYPERTENSION
  2. ANGIOTENSIN II RECEPTOR BLOCKING AGENT [Concomitant]
     Indication: HYPERTENSION
  3. CALCIUM CHANNEL BLOCKER [Concomitant]
     Indication: HYPERTENSION
  4. PREDNISOLONE [Concomitant]
     Indication: MICROSCOPIC POLYANGIITIS
     Dosage: 60 MG
     Route: 048
  5. PERSANTIN [Suspect]
     Indication: GLOMERULONEPHRITIS RAPIDLY PROGRESSIVE
     Dosage: 300 MG
  6. HEPARIN [Suspect]

REACTIONS (4)
  - HYPOTENSION [None]
  - HAEMOGLOBIN DECREASED [None]
  - MUSCLE HAEMORRHAGE [None]
  - TACHYCARDIA [None]
